FAERS Safety Report 5237220-2 (Version None)
Quarter: 2007Q1

REPORT INFORMATION
  Report Type: 
  Country: None (occurrence: None)
  Receive Date: 20061208
  Receipt Date: 20050525
  Transmission Date: 20070707
  Serious: Yes (Other)
  Sender: FDA-Public Use
  Company Number: 2005UW08095

PATIENT
  Age: 59 Year
  Sex: Female

DRUGS (3)
  1. CRESTOR [Suspect]
     Indication: BLOOD CHOLESTEROL INCREASED
     Dosage: 10 MG PO
     Route: 048
  2. TOPROL-XL [Concomitant]
  3. ESTROGENS SOL/INJ [Concomitant]

REACTIONS (1)
  - HYPOAESTHESIA [None]
